FAERS Safety Report 24300412 (Version 1)
Quarter: 2024Q3

REPORT INFORMATION
  Report Type: Spontaneous
  Country: US (occurrence: US)
  Receive Date: 20240909
  Receipt Date: 20240909
  Transmission Date: 20241017
  Serious: No
  Sender: SANOFI AVENTIS
  Company Number: US-SA-2024SA259166

PATIENT
  Sex: Female
  Weight: 290 kg

DRUGS (1)
  1. DUPIXENT [Suspect]
     Active Substance: DUPILUMAB
     Indication: Asthma
     Dosage: INJECT 300MG UNDER THE SKIN EVERY 2 WEEKS

REACTIONS (1)
  - Illness [Unknown]
